FAERS Safety Report 6589948-X (Version None)
Quarter: 2010Q1

REPORT INFORMATION
  Report Type: 
  Country: None (occurrence: None)
  Receive Date: 20100219
  Receipt Date: 20100215
  Transmission Date: 20100710
  Serious: Yes (Other)
  Sender: FDA-Public Use
  Company Number: JP-ASTRAZENECA-2010SE03406

PATIENT
  Age: 20105 Day
  Sex: Female
  Weight: 78 kg

DRUGS (1)
  1. CRESTOR [Suspect]
     Indication: DYSLIPIDAEMIA
     Route: 048
     Dates: start: 20091031, end: 20100120

REACTIONS (1)
  - SINUS BRADYCARDIA [None]
